FAERS Safety Report 4524752-5 (Version None)
Quarter: 2004Q4

REPORT INFORMATION
  Report Type: 
  Country: None (occurrence: None)
  Receive Date: 20041213
  Receipt Date: 20041201
  Transmission Date: 20050328
  Serious: Yes (Death, Other)
  Sender: FDA-Public Use
  Company Number: US-JNJFOC-20041200425

PATIENT
  Sex: Female

DRUGS (2)
  1. REOPRO [Suspect]
     Route: 042
  2. RETEVASE [Suspect]
     Indication: DRUG USE FOR UNKNOWN INDICATION
     Route: 042

REACTIONS (3)
  - CORONARY ARTERY OCCLUSION [None]
  - HAEMORRHAGE INTRACRANIAL [None]
  - THROMBOSIS [None]
